FAERS Safety Report 10304276 (Version 1)
Quarter: 2014Q3

REPORT INFORMATION
  Report Type: Spontaneous
  Country: KH (occurrence: CA)
  Receive Date: 20140714
  Receipt Date: 20140714
  Transmission Date: 20150326
  Serious: Yes (Other)
  Sender: FDA-Public Use
  Company Number: PHHY2014CA085193

PATIENT
  Sex: Male

DRUGS (2)
  1. DIGOXIN INJ C.S.D. [Suspect]
     Active Substance: DIGOXIN
  2. IODINE [Concomitant]
     Active Substance: IODINE

REACTIONS (5)
  - Bronchospasm [Recovered/Resolved]
  - Anaphylactic shock [Recovered/Resolved]
  - Hypovolaemia [Recovered/Resolved]
  - Blood pressure decreased [Recovered/Resolved]
  - Rash [Recovered/Resolved]
